FAERS Safety Report 10151860 (Version 1)
Quarter: 2014Q2

REPORT INFORMATION
  Report Type: Spontaneous
  Country: CA (occurrence: CA)
  Receive Date: 20140505
  Receipt Date: 20140505
  Transmission Date: 20141212
  Serious: Yes (Other)
  Sender: FDA-Public Use
  Company Number: CA-AMGEN-CANSP2014031176

PATIENT
  Age: 61 Year
  Sex: Female

DRUGS (4)
  1. NEULASTA [Suspect]
     Indication: PRODUCT USED FOR UNKNOWN INDICATION
     Dosage: 10 MG/ML, WITH 5 REPEATS
     Route: 065
     Dates: start: 20140331
  2. ADRIAMYCIN                         /00330901/ [Concomitant]
     Dosage: UNK
  3. CYTOXAN [Concomitant]
     Dosage: UNK
  4. TAXOL [Concomitant]
     Dosage: UNK

REACTIONS (2)
  - Rheumatoid arthritis [Unknown]
  - Pain [Recovering/Resolving]
